FAERS Safety Report 12484701 (Version 3)
Quarter: 2017Q1

REPORT INFORMATION
  Report Type: Spontaneous
  Country: US (occurrence: US)
  Receive Date: 20160621
  Receipt Date: 20170215
  Transmission Date: 20170428
  Serious: Yes (Other)
  Sender: FDA-Public Use
  Company Number: US-SA-2016SA112602

PATIENT
  Sex: Male

DRUGS (40)
  1. AMPYRA [Suspect]
     Active Substance: DALFAMPRIDINE
     Indication: GAIT DISTURBANCE
     Route: 048
     Dates: start: 20120917
  2. CETROTIDE [Concomitant]
     Active Substance: CETRORELIX ACETATE
     Dosage: STRENGTH: 0.25 MG
  3. PRILOSEC [Concomitant]
     Active Substance: OMEPRAZOLE MAGNESIUM
     Dosage: STRENGTH: 20 MG
     Route: 048
  4. ATENOLOL. [Concomitant]
     Active Substance: ATENOLOL
     Dosage: STRENGTH:100 MG
     Route: 048
  5. LYRICA [Suspect]
     Active Substance: PREGABALIN
     Route: 065
  6. ASPIRIN. [Concomitant]
     Active Substance: ASPIRIN
     Dosage: STRENGTH: 325 MG
     Route: 048
  7. CYMBALTA [Concomitant]
     Active Substance: DULOXETINE HYDROCHLORIDE
     Dosage: STRENGTH: 30 MG
  8. FISH OIL [Concomitant]
     Active Substance: FISH OIL
     Dates: start: 2011
  9. GABAPENTIN. [Concomitant]
     Active Substance: GABAPENTIN
     Dosage: STRENGTH: 300 MG, 400 MG
     Route: 048
  10. OXYBUTYNIN CHLORIDE. [Concomitant]
     Active Substance: OXYBUTYNIN CHLORIDE
     Dosage: STRENGTH: 5 MG
     Route: 048
  11. AUBAGIO [Suspect]
     Active Substance: TERIFLUNOMIDE
     Indication: MULTIPLE SCLEROSIS
     Route: 048
     Dates: start: 20150405, end: 20150505
  12. TRICOR [Concomitant]
     Active Substance: FENOFIBRATE
     Dosage: STRENGTH:145 MG
     Route: 048
  13. HYDROXYZINE [Concomitant]
     Active Substance: HYDROXYZINE HYDROCHLORIDE
     Dosage: STRENGTH: 50 MG
     Route: 048
  14. RANITIDINE. [Concomitant]
     Active Substance: RANITIDINE
     Dosage: STRENGTH: 150 MG
     Dates: start: 2010
  15. OXYCONTIN [Concomitant]
     Active Substance: OXYCODONE HYDROCHLORIDE
     Dosage: STRENGTH: 20 MG
     Route: 048
  16. ALPHA LIPOIC ACID [Concomitant]
     Active Substance: .ALPHA.-LIPOIC ACID
     Route: 048
     Dates: start: 20160509
  17. GAMMAGARD [Concomitant]
     Active Substance: HUMAN IMMUNOGLOBULIN G
     Dosage: STRENGTH: 40 GM, EVERY 4 WEEKS
     Route: 042
  18. LEVAQUIN [Concomitant]
     Active Substance: LEVOFLOXACIN
  19. FUROSEMIDE. [Concomitant]
     Active Substance: FUROSEMIDE
     Dosage: STRENGTH:20 MG
  20. NITROFURANTOIN. [Concomitant]
     Active Substance: NITROFURANTOIN
     Dosage: STRENGTH: 100 MG
  21. TROSPIUM [Concomitant]
     Active Substance: TROSPIUM
  22. ALBUTEROL. [Concomitant]
     Active Substance: ALBUTEROL
  23. ACTHAR [Concomitant]
     Active Substance: CORTICOTROPIN
     Dosage: STRENGTH: 80 UNITS/ML, FORM INJECTION GEL
     Dates: start: 20160509
  24. TERAZOSIN [Concomitant]
     Active Substance: TERAZOSIN\TERAZOSIN HYDROCHLORIDE
     Dosage: STRENGTH: 5 MG
  25. PLAVIX [Concomitant]
     Active Substance: CLOPIDOGREL BISULFATE
     Dosage: STRENGTH: 75 MG
     Route: 048
  26. OLANZAPINE. [Concomitant]
     Active Substance: OLANZAPINE
     Dosage: STRENGTH: 10 MG
  27. AMBIEN [Concomitant]
     Active Substance: ZOLPIDEM TARTRATE
     Dosage: STRENGTH: 10 MG
     Route: 048
  28. XANAX [Concomitant]
     Active Substance: ALPRAZOLAM
     Dosage: STRENGTH: 1 MG
     Route: 048
  29. OXYCODONE HYDROCHLORIDE. [Concomitant]
     Active Substance: OXYCODONE HYDROCHLORIDE
     Dosage: STRENGTH: 5 MG
     Route: 048
  30. PROAIR HFA [Concomitant]
     Active Substance: ALBUTEROL SULFATE
  31. UROXATRAL [Concomitant]
     Active Substance: ALFUZOSIN HYDROCHLORIDE
     Dates: start: 2013
  32. POLYMYXIN B/NEOMYCIN/DEXAMETHASONE [Concomitant]
     Dosage: STRENGTH:3.5-10000-0. I?FORM:OPHTHALMIC SUSPENSION
  33. NITROGLYCERIN. [Concomitant]
     Active Substance: NITROGLYCERIN
     Route: 060
  34. ZANAFLEX [Suspect]
     Active Substance: TIZANIDINE HYDROCHLORIDE
     Indication: MUSCLE SPASMS
     Route: 048
  35. HOMATROPINE/HYDROCODONE [Concomitant]
     Dates: start: 2006
  36. FLUTICASONE PROPIONATE. [Concomitant]
     Active Substance: FLUTICASONE PROPIONATE
     Dosage: STRENGTH: 50 MCG
  37. GABAPENTIN. [Concomitant]
     Active Substance: GABAPENTIN
     Dosage: STRENGTH: 300 MG
     Route: 048
  38. TIZANIDINE HYDROCHLORIDE. [Concomitant]
     Active Substance: TIZANIDINE HYDROCHLORIDE
     Dosage: 4 MG
     Route: 048
  39. VITAMIN D [Concomitant]
     Active Substance: CHOLECALCIFEROL
     Dates: start: 201306
  40. CRESTOR [Concomitant]
     Active Substance: ROSUVASTATIN CALCIUM
     Dosage: STRENGTH: 10 MG
     Route: 048
     Dates: start: 2013

REACTIONS (9)
  - Thinking abnormal [Recovering/Resolving]
  - Condition aggravated [Not Recovered/Not Resolved]
  - Delirium [Recovering/Resolving]
  - Pain [Recovering/Resolving]
  - Hypersomnia [Recovering/Resolving]
  - Fatigue [Recovering/Resolving]
  - Incoherent [Unknown]
  - Muscle spasms [Recovering/Resolving]
  - Nausea [Recovering/Resolving]

NARRATIVE: CASE EVENT DATE: 2016
